FAERS Safety Report 8464568-0 (Version None)
Quarter: 2012Q2

REPORT INFORMATION
  Report Type: 
  Country: None (occurrence: None)
  Receive Date: 20120620
  Receipt Date: 20120620
  Transmission Date: 20120825
  Serious: No
  Sender: FDA-Public Use
  Company Number: None

PATIENT
  Sex: Male

DRUGS (2)
  1. PEGASYS [Suspect]
     Dosage: 180 MCG WEEKLY SQ
     Route: 058
  2. RIBAVIRIN [Suspect]
     Dosage: 1000MG DAILY PO
     Route: 048

REACTIONS (1)
  - SUICIDAL IDEATION [None]
